FAERS Safety Report 8277933-1 (Version None)
Quarter: 2012Q2

REPORT INFORMATION
  Report Type: 
  Country: None (occurrence: None)
  Receive Date: 20120412
  Receipt Date: 20120402
  Transmission Date: 20120825
  Serious: Yes (Death, Hospitalization)
  Sender: FDA-Public Use
  Company Number: BR-ELI_LILLY_AND_COMPANY-BR201201008468

PATIENT
  Age: 82 Year
  Sex: Male

DRUGS (1)
  1. FORTEO [Suspect]
     Indication: OSTEOPOROSIS
     Dosage: UNK, UNKNOWN
     Route: 065
     Dates: end: 20100101

REACTIONS (5)
  - INTENTIONAL DRUG MISUSE [None]
  - DRUG INEFFECTIVE [None]
  - BRONCHIECTASIS [None]
  - FRACTURE [None]
  - FALL [None]
